FAERS Safety Report 15616160 (Version 1)
Quarter: 2018Q4

REPORT INFORMATION
  Report Type: Spontaneous
  Country: IT (occurrence: IT)
  Receive Date: 20181114
  Receipt Date: 20181114
  Transmission Date: 20190205
  Serious: Yes (Hospitalization)
  Sender: FDA-Public Use
  Company Number: IT-ROCHE-2213014

PATIENT
  Age: 73 Year
  Sex: Female

DRUGS (1)
  1. BEVACIZUMAB. [Suspect]
     Active Substance: BEVACIZUMAB
     Indication: BREAST CANCER
     Dosage: BEVACIZUMAB FOR A LONG TIME (89 CYCLES SINCE 2013) IN THE MAINTENANCE PHASE.
     Route: 065
     Dates: start: 2013

REACTIONS (3)
  - Myocardial ischaemia [Unknown]
  - Pulmonary hypertension [Unknown]
  - Ejection fraction decreased [Unknown]
